FAERS Safety Report 17411201 (Version 2)
Quarter: 2020Q1

REPORT INFORMATION
  Report Type: Spontaneous
  Country: US (occurrence: US)
  Receive Date: 20200212
  Receipt Date: 20200327
  Transmission Date: 20200409
  Serious: Yes (Other)
  Sender: FDA-Public Use
  Company Number: US-GILEAD-2020-0450754

PATIENT
  Age: 67 Year
  Sex: Female
  Weight: 59.8 kg

DRUGS (1)
  1. YESCARTA [Suspect]
     Active Substance: AXICABTAGENE CILOLEUCEL
     Indication: DIFFUSE LARGE B-CELL LYMPHOMA
     Dosage: 68 ML, ONCE
     Route: 042
     Dates: start: 20200203, end: 20200203

REACTIONS (8)
  - Cytokine release syndrome [Recovered/Resolved]
  - Hypokalaemia [Unknown]
  - Neurotoxicity [Recovered/Resolved]
  - Ventricular tachycardia [Unknown]
  - Pleural effusion [Unknown]
  - Urinary tract infection enterococcal [Not Recovered/Not Resolved]
  - Neurotoxicity [Recovered/Resolved]
  - Cytokine release syndrome [Recovered/Resolved]

NARRATIVE: CASE EVENT DATE: 20200204
